FAERS Safety Report 8553166-6 (Version None)
Quarter: 2012Q3

REPORT INFORMATION
  Report Type: 
  Country: None (occurrence: None)
  Receive Date: 20120731
  Receipt Date: 20120716
  Transmission Date: 20120928
  Serious: Yes (Hospitalization, Other)
  Sender: FDA-Public Use
  Company Number: US-PFIZER INC-2012181405

PATIENT
  Age: 38 Year
  Sex: Female

DRUGS (2)
  1. MOTRIN [Suspect]
     Indication: PAIN PROPHYLAXIS
     Dosage: 800 MG, AS NEEDED
     Route: 048
  2. BRIVANIB [Suspect]
     Indication: ADENOCARCINOMA OF THE CERVIX
     Dosage: UNSPECIFIED
     Route: 065
     Dates: start: 20120621, end: 20120628

REACTIONS (2)
  - RECTAL HAEMORRHAGE [None]
  - ANAEMIA [None]
